FAERS Safety Report 21983540 (Version 1)
Quarter: 2023Q1

REPORT INFORMATION
  Report Type: Spontaneous
  Country: GB (occurrence: GB)
  Receive Date: 20230213
  Receipt Date: 20230213
  Transmission Date: 20230418
  Serious: Yes (Hospitalization)
  Sender: FDA-Public Use
  Company Number: None

PATIENT
  Age: 97 Year
  Sex: Female

DRUGS (9)
  1. OMEPRAZOLE [Suspect]
     Active Substance: OMEPRAZOLE
     Dosage: 20MG - OM
  2. AMLODIPINE [Concomitant]
     Active Substance: AMLODIPINE BESYLATE
     Dosage: 5MG - OM (STARTED LAST ADMISSION)
  3. AMOXICILLIN [Concomitant]
     Active Substance: AMOXICILLIN
  4. APIXABAN [Concomitant]
     Active Substance: APIXABAN
     Indication: Atrial fibrillation
     Dosage: 2.5MG - BD (AF)
  5. DIGOXIN [Concomitant]
     Active Substance: DIGOXIN
     Dosage: 125MICROGRAMS - OM
  6. DOXYCYCLINE [Concomitant]
     Active Substance: DOXYCYCLINE
  7. ACETAMINOPHEN [Concomitant]
     Active Substance: ACETAMINOPHEN
     Dosage: 1G - TDS. STARTED REGULARLY IN PLACE OF CO-CODAMOL LAST ADMISSION (NB: PATIENT IS ONLY 43KG)
  8. RISEDRONATE SODIUM [Concomitant]
     Active Substance: RISEDRONATE SODIUM
     Dosage: 35MG - ONCE A WEEK ON WEDNESDAYS
  9. TAMIFLU [Concomitant]
     Active Substance: OSELTAMIVIR PHOSPHATE
     Dates: end: 20221224

REACTIONS (1)
  - Hyponatraemia [Recovered/Resolved]

NARRATIVE: CASE EVENT DATE: 20221230
